FAERS Safety Report 9725691 (Version 2)
Quarter: 2013Q4

REPORT INFORMATION
  Report Type: Spontaneous
  Country: US (occurrence: None)
  Receive Date: 20131127
  Receipt Date: 20131205
  Transmission Date: 20140711
  Serious: Yes (Other)
  Sender: FDA-Public Use
  Company Number: 2013110050

PATIENT
  Sex: Female

DRUGS (1)
  1. AZELASTINE HYDROCHLORIDE [Suspect]
     Indication: RHINITIS ALLERGIC
     Dosage: IN

REACTIONS (6)
  - Chest discomfort [None]
  - Chest pain [None]
  - Wheezing [None]
  - Lung infection [None]
  - Bacterial infection [None]
  - Product taste abnormal [None]
